FAERS Safety Report 16525020 (Version 3)
Quarter: 2019Q3

REPORT INFORMATION
  Report Type: Spontaneous
  Country: US (occurrence: US)
  Receive Date: 20190702
  Receipt Date: 20190821
  Transmission Date: 20191004
  Serious: No
  Sender: FDA-Public Use
  Company Number: US-GILEAD-2019-0416228

PATIENT
  Sex: Male

DRUGS (2)
  1. RANEXA [Suspect]
     Active Substance: RANOLAZINE
     Dosage: 2000 MG, 30 MINUTES APART
     Route: 065
     Dates: start: 20190622, end: 20190622
  2. RANEXA [Suspect]
     Active Substance: RANOLAZINE
     Indication: PRODUCT USED FOR UNKNOWN INDICATION
     Dosage: 1000 MG, BID
     Route: 065

REACTIONS (6)
  - Sopor [Recovering/Resolving]
  - Accidental overdose [Recovered/Resolved]
  - Hypotension [Recovering/Resolving]
  - Dizziness [Recovering/Resolving]
  - Malaise [Recovering/Resolving]
  - Nausea [Recovering/Resolving]

NARRATIVE: CASE EVENT DATE: 20190622
